FAERS Safety Report 7799431-1 (Version None)
Quarter: 2011Q4

REPORT INFORMATION
  Report Type: 
  Country: None (occurrence: None)
  Receive Date: 20111006
  Receipt Date: 20110923
  Transmission Date: 20120403
  Serious: Yes (Hospitalization)
  Sender: FDA-Public Use
  Company Number: FR-SANOFI-AVENTIS-2011SA062251

PATIENT
  Age: 66 Year
  Sex: Male

DRUGS (6)
  1. CRESTOR [Concomitant]
     Dosage: DOSE:1 UNIT(S)
     Route: 048
  2. MORPHINE SULFATE [Concomitant]
     Indication: PAIN
     Dosage: DOSE:1 UNIT(S)
     Route: 048
     Dates: start: 20110808
  3. GENTAMICIN SULFATE [Concomitant]
     Route: 042
     Dates: start: 20110802, end: 20110806
  4. CANDESARTAN CILEXETIL AND HYDROCHLOROTHIAZIDE [Concomitant]
     Dosage: DOSE:1 UNIT(S)
     Route: 048
  5. ZOLPIDEM [Suspect]
     Indication: INSOMNIA
     Route: 048
     Dates: start: 20110808, end: 20110809
  6. TARGOCID [Concomitant]
     Route: 042
     Dates: start: 20110802, end: 20110806

REACTIONS (6)
  - SPEECH DISORDER [None]
  - APHASIA [None]
  - TREMOR [None]
  - DYSARTHRIA [None]
  - AGITATION [None]
  - MIXED RECEPTIVE-EXPRESSIVE LANGUAGE DISORDER [None]
